FAERS Safety Report 5455964-4 (Version None)
Quarter: 2007Q3

REPORT INFORMATION
  Report Type: 
  Country: None (occurrence: None)
  Receive Date: 20070914
  Receipt Date: 20070906
  Transmission Date: 20080115
  Serious: Yes (Other)
  Sender: FDA-Public Use
  Company Number: 2007330478

PATIENT
  Age: 59 Year
  Sex: Male
  Weight: 93 kg

DRUGS (2)
  1. VISINE PURE TEARS (GLYCERIN, POLYETHYLENE GLYCOL, HYDROXYPROPOYLMETHYL [Suspect]
     Indication: DRY EYE
     Dosage: EVERY MORNING, OPHTHALMIC
     Route: 047
     Dates: start: 20070601
  2. DRUG, UNSPECIFIED (DRUG, UNSPECIFIED) [Concomitant]

REACTIONS (5)
  - CONJUNCTIVAL HAEMORRHAGE [None]
  - DRUG ADMINISTRATION ERROR [None]
  - EYE INJURY [None]
  - FOREIGN BODY TRAUMA [None]
  - VISUAL ACUITY REDUCED [None]
